FAERS Safety Report 8520748-7 (Version None)
Quarter: 2012Q3

REPORT INFORMATION
  Report Type: 
  Country: None (occurrence: None)
  Receive Date: 20120719
  Receipt Date: 20120712
  Transmission Date: 20120928
  Serious: Yes (Hospitalization, Other)
  Sender: FDA-Public Use
  Company Number: US-AMGEN-USASP2012044029

PATIENT
  Age: 57 Year
  Sex: Female
  Weight: 79.365 kg

DRUGS (4)
  1. RIBAVIRIN [Concomitant]
     Indication: HEPATITIS C
     Dosage: 200 MG, QD
     Route: 048
     Dates: start: 20120526
  2. INCIVEK [Concomitant]
     Indication: HEPATITIS C
     Dosage: 375 MG, Q8H
     Route: 048
     Dates: start: 20120526
  3. PEGASYS [Concomitant]
     Indication: HEPATITIS C
     Dosage: 180 MUG, QWK
     Route: 058
     Dates: start: 20120526
  4. PROCRIT [Suspect]
     Indication: ANAEMIA
     Dosage: 40000 IU, QWK
     Route: 058
     Dates: start: 20120531

REACTIONS (10)
  - SOMNOLENCE [None]
  - BLOOD COUNT ABNORMAL [None]
  - ASTHENIA [None]
  - OEDEMA MOUTH [None]
  - PYREXIA [None]
  - ORAL CANDIDIASIS [None]
  - INCORRECT STORAGE OF DRUG [None]
  - PRODUCT CONTAMINATION [None]
  - CHILLS [None]
  - MALAISE [None]
